FAERS Safety Report 9463966 (Version 2)
Quarter: 2013Q3

REPORT INFORMATION
  Report Type: Spontaneous
  Country: US (occurrence: US)
  Receive Date: 20130819
  Receipt Date: 20130819
  Transmission Date: 20140515
  Serious: No
  Sender: FDA-Public Use
  Company Number: US-BRISTOL-MYERS SQUIBB COMPANY-16849747

PATIENT
  Age: 52 Year
  Sex: Male
  Weight: 87.07 kg

DRUGS (1)
  1. REYATAZ [Suspect]
     Dosage: TOOK 2 TABLETS.
     Dates: start: 2012

REACTIONS (1)
  - Overdose [Unknown]
